FAERS Safety Report 5794126-8 (Version None)
Quarter: 2008Q2

REPORT INFORMATION
  Report Type: 
  Country: None (occurrence: None)
  Receive Date: 20080625
  Receipt Date: 20080611
  Transmission Date: 20081010
  Serious: Yes (Other)
  Sender: FDA-Public Use
  Company Number: MK-6034156

PATIENT
  Age: 15 Year
  Sex: Female
  Weight: 77.1115 kg

DRUGS (1)
  1. ISOTRETINOIN [Suspect]
     Indication: DRUG USE FOR UNKNOWN INDICATION
     Dosage: 40 MG; TWICE A DAY; ORAL
     Route: 048
     Dates: start: 20070213, end: 20070605

REACTIONS (6)
  - CAESAREAN SECTION [None]
  - DRUG EXPOSURE DURING PREGNANCY [None]
  - HEADACHE [None]
  - PREGNANCY INDUCED HYPERTENSION [None]
  - TACHYCARDIA [None]
  - TREATMENT NONCOMPLIANCE [None]
